FAERS Safety Report 20229919 (Version 1)
Quarter: 2021Q4

REPORT INFORMATION
  Report Type: Spontaneous
  Country: US (occurrence: US)
  Receive Date: 20211226
  Receipt Date: 20211226
  Transmission Date: 20220304
  Serious: No
  Sender: FDA-Public Use
  Company Number: US-ABBVIE-21K-163-4135412-00

PATIENT
  Age: 54 Year
  Sex: Female
  Weight: 88.530 kg

DRUGS (6)
  1. SKYRIZI [Suspect]
     Active Substance: RISANKIZUMAB-RZAA
     Indication: Skin disorder
     Route: 058
     Dates: start: 202104
  2. SKYRIZI [Suspect]
     Active Substance: RISANKIZUMAB-RZAA
     Indication: Myalgia
  3. SKYRIZI [Suspect]
     Active Substance: RISANKIZUMAB-RZAA
     Indication: Arthralgia
  4. METHOTREXATE [Concomitant]
     Active Substance: METHOTREXATE
     Indication: Skin disorder
  5. METHOTREXATE [Concomitant]
     Active Substance: METHOTREXATE
     Indication: Myalgia
  6. METHOTREXATE [Concomitant]
     Active Substance: METHOTREXATE
     Indication: Arthralgia

REACTIONS (3)
  - Myalgia [Not Recovered/Not Resolved]
  - Arthralgia [Not Recovered/Not Resolved]
  - Drug ineffective [Unknown]

NARRATIVE: CASE EVENT DATE: 20210501
